FAERS Safety Report 19504134 (Version 1)
Quarter: 2021Q3

REPORT INFORMATION
  Report Type: Spontaneous
  Country: DK (occurrence: DK)
  Receive Date: 20210707
  Receipt Date: 20210707
  Transmission Date: 20211014
  Serious: Yes (Hospitalization)
  Sender: FDA-Public Use
  Company Number: DK-EISAI MEDICAL RESEARCH-EC-2021-095221

PATIENT
  Age: 72 Year
  Sex: Female
  Weight: 60 kg

DRUGS (3)
  1. LENVIMA [Suspect]
     Active Substance: LENVATINIB
     Indication: UTERINE CANCER
     Route: 048
     Dates: start: 20210505, end: 20210520
  2. KEYTRUDA [Concomitant]
     Active Substance: PEMBROLIZUMAB
     Indication: UTERINE CANCER
     Dosage: DOSE AND FREQUENCY UNKNOWN
     Route: 065
     Dates: start: 20210507
  3. LENVIMA [Suspect]
     Active Substance: LENVATINIB
     Route: 048
     Dates: start: 20210528, end: 20210528

REACTIONS (11)
  - Oesophagitis [Unknown]
  - Diarrhoea [Unknown]
  - Gingival pain [Unknown]
  - Dysphonia [Unknown]
  - Acute myocardial infarction [Unknown]
  - Nausea [Unknown]
  - Chest discomfort [Unknown]
  - Fatigue [Unknown]
  - Taste disorder [Unknown]
  - Vomiting [Unknown]
  - Mucosal disorder [Unknown]

NARRATIVE: CASE EVENT DATE: 202105
